FAERS Safety Report 18601667 (Version 1)
Quarter: 2020Q4

REPORT INFORMATION
  Report Type: Report from Study
  Country: FR (occurrence: FR)
  Receive Date: 20201210
  Receipt Date: 20201210
  Transmission Date: 20210114
  Serious: Yes (Hospitalization)
  Sender: FDA-Public Use
  Company Number: FR-MYLANLABS-2020M1100261

PATIENT
  Age: 86 Year
  Weight: 72 kg

DRUGS (6)
  1. LENOGRASTIM [Suspect]
     Active Substance: LENOGRASTIM
     Indication: HORMONE-REFRACTORY PROSTATE CANCER
     Dosage: DAY 3 TO DAY 7 (5 DAYS) AFTER EVERY ADMINISTRATION OF CABAZITAXEL
     Route: 065
  2. PREDNISONE. [Suspect]
     Active Substance: PREDNISONE
     Dosage: 10 MG, QD
     Route: 048
     Dates: start: 20201102, end: 20201102
  3. PREDNISONE. [Suspect]
     Active Substance: PREDNISONE
     Indication: HORMONE-REFRACTORY PROSTATE CANCER
     Dosage: 10 MG, QD
     Route: 048
  4. CABAZITAXEL [Suspect]
     Active Substance: CABAZITAXEL
     Indication: HORMONE-REFRACTORY PROSTATE CANCER
     Dosage: 26 MG/M2, QOW
     Route: 042
  5. LENOGRASTIM [Suspect]
     Active Substance: LENOGRASTIM
     Dosage: DAY 3 TO DAY 7 (5 DAYS) AFTER EVERY ADMINISTRATION OF CABAZITAXEL
     Route: 065
  6. CABAZITAXEL [Suspect]
     Active Substance: CABAZITAXEL
     Dosage: 26 MG, QOW
     Route: 042
     Dates: start: 20201014, end: 20201014

REACTIONS (1)
  - Bursitis [Not Recovered/Not Resolved]

NARRATIVE: CASE EVENT DATE: 20201103
